FAERS Safety Report 8215906-5 (Version None)
Quarter: 2012Q1

REPORT INFORMATION
  Report Type: 
  Country: None (occurrence: None)
  Receive Date: 20120316
  Receipt Date: 20120309
  Transmission Date: 20120608
  Serious: Yes (Hospitalization)
  Sender: FDA-Public Use
  Company Number: US-BAYER-2011-093993

PATIENT
  Age: 34 Year
  Sex: Female
  Weight: 158.73 kg

DRUGS (19)
  1. NASONEX [Concomitant]
     Dosage: UNK
     Dates: start: 20080123
  2. CIPROFLOXACIN [Concomitant]
     Dosage: 500 MG, UNK
     Dates: start: 20080122
  3. NEXIUM [Concomitant]
     Dosage: UNK
     Dates: start: 20080402
  4. ADVAIR DISKUS 100/50 [Concomitant]
     Dosage: UNK
     Dates: start: 20080124
  5. ANTIBIOTICS [Concomitant]
  6. NEXIUM [Concomitant]
     Dosage: UNK
     Dates: start: 20080213
  7. PROAIR HFA [Concomitant]
     Dosage: UNK
     Dates: start: 19900101
  8. ASCORBIC ACID [Concomitant]
     Dosage: UNK
     Dates: start: 20070101, end: 20080101
  9. FLUOXETINE [Concomitant]
     Dosage: 20 MG, UNK
     Dates: start: 20080213
  10. FLUOXETINE [Concomitant]
     Dosage: 20 MG, UNK
     Dates: start: 20080324
  11. HYDROCODONE BITARTRATE AND ACETAMINOPHEN [Concomitant]
     Dosage: UNK
     Dates: start: 20080122
  12. HYDROCODONE BITARTRATE AND ACETAMINOPHEN [Concomitant]
     Dosage: UNK
     Dates: start: 20080325
  13. METRONIDAZOLE [Concomitant]
     Dosage: 500 MG, UNK
     Dates: start: 20080122
  14. YASMIN [Suspect]
     Indication: PREMENSTRUAL SYNDROME
     Dosage: UNK
     Dates: start: 20070301, end: 20091001
  15. DROSPIRENONE AND ETHINYL ESTRADIOL [Suspect]
     Indication: PREMENSTRUAL SYNDROME
     Dosage: UNK
     Dates: start: 20070301, end: 20091001
  16. NASONEX [Concomitant]
     Dosage: UNK
     Dates: start: 20080402
  17. ALBUTEROL [Concomitant]
     Dosage: UNK
     Dates: start: 20080320
  18. PROZAC [Concomitant]
  19. ADVAIR DISKUS 100/50 [Concomitant]
     Dosage: UNK
     Dates: start: 20080305

REACTIONS (4)
  - CHOLECYSTITIS CHRONIC [None]
  - INJURY [None]
  - GALLBLADDER DISORDER [None]
  - PAIN [None]
